FAERS Safety Report 7833607-X (Version None)
Quarter: 2011Q4

REPORT INFORMATION
  Report Type: 
  Country: None (occurrence: None)
  Receive Date: 20111024
  Receipt Date: 20111019
  Transmission Date: 20120403
  Serious: Yes (Death, Hospitalization)
  Sender: FDA-Public Use
  Company Number: ES-SANOFI-AVENTIS-2011SA060139

PATIENT
  Age: 76 Year
  Sex: Male
  Weight: 70 kg

DRUGS (5)
  1. PREDNISONE [Suspect]
     Indication: PROSTATE CANCER METASTATIC
     Route: 048
     Dates: start: 20110812
  2. SIMVASTATIN [Concomitant]
  3. CABAZITAXEL [Suspect]
     Indication: PROSTATE CANCER METASTATIC
     Route: 042
     Dates: start: 20110812, end: 20110812
  4. CABAZITAXEL [Suspect]
     Route: 042
     Dates: start: 20110902, end: 20110902
  5. RANITIDINE [Concomitant]
     Dates: start: 20110912, end: 20110914

REACTIONS (3)
  - DUODENAL PERFORATION [None]
  - INFECTIOUS PERITONITIS [None]
  - NAUSEA [None]
